FAERS Safety Report 5607892-9 (Version None)
Quarter: 2008Q1

REPORT INFORMATION
  Report Type: 
  Country: None (occurrence: None)
  Receive Date: 20080130
  Receipt Date: 20070814
  Transmission Date: 20080703
  Serious: No
  Sender: FDA-Public Use
  Company Number: US-ASTRAZENECA-2007UW19630

PATIENT
  Age: 73 Year
  Sex: Female
  Weight: 68 kg

DRUGS (8)
  1. ACCOLATE [Suspect]
     Indication: CHRONIC OBSTRUCTIVE PULMONARY DISEASE
     Route: 048
  2. ACCOLATE [Suspect]
     Route: 048
  3. ADVAIR DISKUS 100/50 [Concomitant]
     Dosage: 250/50
  4. COMBIVENT [Concomitant]
     Dosage: 2-4 PUFFS
  5. K+10 [Concomitant]
  6. LASIX [Concomitant]
  7. PREDNISONE TAB [Concomitant]
  8. COZAAR [Concomitant]
     Route: 048

REACTIONS (1)
  - BURNING SENSATION [None]
